FAERS Safety Report 25924219 (Version 1)
Quarter: 2025Q4

REPORT INFORMATION
  Report Type: Report from Study
  Country: PH (occurrence: PH)
  Receive Date: 20251015
  Receipt Date: 20251015
  Transmission Date: 20260117
  Serious: Yes (Other)
  Sender: TAKEDA
  Company Number: PH-TAKEDA-2025TUS089868

PATIENT
  Age: 36 Year
  Sex: Male

DRUGS (1)
  1. ANTI-INHIBITOR COAGULANT COMPLEX [Suspect]
     Active Substance: ANTI-INHIBITOR COAGULANT COMPLEX
     Indication: Haemophilia
     Dosage: 500 INTERNATIONAL UNIT

REACTIONS (4)
  - Drug ineffective [Unknown]
  - Palpitations [Unknown]
  - Feeling hot [Unknown]
  - Dyspnoea [Unknown]
